FAERS Safety Report 6311699-7 (Version None)
Quarter: 2009Q3

REPORT INFORMATION
  Report Type: 
  Country: None (occurrence: None)
  Receive Date: 20090813
  Receipt Date: 20090813
  Transmission Date: 20100115
  Serious: Yes (Hospitalization, Disabling)
  Sender: FDA-Public Use
  Company Number: None

PATIENT
  Sex: Female
  Weight: 73.4827 kg

DRUGS (1)
  1. ZYPREXA [Suspect]
     Indication: BIPOLAR I DISORDER
     Dosage: 30 MG BEDTIME 8:00 EVERY NIGHT

REACTIONS (7)
  - CONFUSIONAL STATE [None]
  - DYSPNOEA [None]
  - HEART RATE INCREASED [None]
  - INSOMNIA [None]
  - MEMORY IMPAIRMENT [None]
  - TREMOR [None]
  - WEIGHT INCREASED [None]
